FAERS Safety Report 5996600-8 (Version None)
Quarter: 2008Q4

REPORT INFORMATION
  Report Type: 
  Country: None (occurrence: None)
  Receive Date: 20081212
  Receipt Date: 20081020
  Transmission Date: 20090506
  Serious: No
  Sender: FDA-Public Use
  Company Number: US-ABBOTT-08P-163-0482935-00

PATIENT
  Sex: Female

DRUGS (15)
  1. HUMIRA [Suspect]
     Indication: PSORIASIS
     Dates: start: 20080907
  2. BACLOFEN [Concomitant]
     Indication: FIBROMYALGIA
     Route: 048
  3. DIOVAN HCT [Concomitant]
     Indication: BLOOD PRESSURE
     Dosage: 80/12.5 MG TWICE A DAY
     Route: 048
  4. POTASSIUM CHLORIDE [Concomitant]
     Indication: DRUG USE FOR UNKNOWN INDICATION
     Route: 048
  5. DEXTROPROPOXYPHENE [Concomitant]
     Indication: PAIN
     Route: 048
  6. ESOMEPRAZOLE MAGNESIUM [Concomitant]
     Indication: GASTROOESOPHAGEAL REFLUX DISEASE
     Route: 048
  7. SINEMET [Concomitant]
     Indication: RESTLESS LEGS SYNDROME
     Dosage: 25/100 DAILY AT BEDTIME
     Route: 048
  8. FOLIC ACID [Concomitant]
     Indication: DRUG USE FOR UNKNOWN INDICATION
     Route: 048
  9. PREDNISONE TAB [Concomitant]
     Indication: PSORIASIS
     Dosage: DECREASING DOSE DAILY
     Route: 048
  10. LIDOCAINE JELLY [Concomitant]
     Indication: PSORIASIS
     Route: 061
  11. PREGABALIN [Concomitant]
     Indication: FIBROMYALGIA
     Route: 048
  12. LEVOTHYROXINE SODIUM [Concomitant]
     Indication: HYPOTHYROIDISM
     Route: 048
  13. DULOXETINE HYDROCHLORIDE [Concomitant]
     Indication: FIBROMYALGIA
     Route: 048
  14. CLOBETASOL PROPIONATE [Concomitant]
     Indication: PSORIASIS
     Dosage: ALTERNATE WITH ALTERNATE WITH BETAMETHASONE X 2 DAILY
     Route: 061
  15. BETAMETHASONE [Concomitant]
     Indication: PSORIASIS
     Dosage: ALTERNATE WTIH CLOBETASOL
     Route: 061

REACTIONS (2)
  - MUSCLE CONTRACTIONS INVOLUNTARY [None]
  - MUSCLE SPASMS [None]
